FAERS Safety Report 16465248 (Version 1)
Quarter: 2019Q2

REPORT INFORMATION
  Report Type: Spontaneous
  Country: US (occurrence: US)
  Receive Date: 20190621
  Receipt Date: 20190621
  Transmission Date: 20190711
  Serious: Yes (Hospitalization, Other)
  Sender: FDA-Public Use
  Company Number: US-ASTRAZENECA-2019SE88116

PATIENT
  Age: 60 Year
  Sex: Female
  Weight: 64.9 kg

DRUGS (12)
  1. CRESTOR [Suspect]
     Active Substance: ROSUVASTATIN CALCIUM
     Indication: BLOOD CHOLESTEROL
     Route: 048
     Dates: start: 2008, end: 201905
  2. FISH OIL [Concomitant]
     Active Substance: FISH OIL
     Route: 048
  3. DEXILANT [Concomitant]
     Active Substance: DEXLANSOPRAZOLE
     Indication: GASTROOESOPHAGEAL REFLUX DISEASE
     Dosage: INCREASED 30 MG TO 60 MG
     Dates: start: 2008
  4. CRESTOR [Suspect]
     Active Substance: ROSUVASTATIN CALCIUM
     Indication: BLOOD CHOLESTEROL
     Route: 048
     Dates: start: 201905
  5. CRESTOR [Suspect]
     Active Substance: ROSUVASTATIN CALCIUM
     Indication: CARDIAC DISORDER
     Dosage: STOPPED FOR ONE MONTH
     Route: 048
     Dates: end: 2014
  6. CRESTOR [Suspect]
     Active Substance: ROSUVASTATIN CALCIUM
     Indication: CARDIAC DISORDER
     Route: 048
     Dates: start: 201905
  7. CRESTOR [Suspect]
     Active Substance: ROSUVASTATIN CALCIUM
     Indication: BLOOD CHOLESTEROL
     Dosage: STOPPED FOR A WEEK
     Route: 048
     Dates: end: 2013
  8. CRESTOR [Suspect]
     Active Substance: ROSUVASTATIN CALCIUM
     Indication: BLOOD CHOLESTEROL
     Dosage: STOPPED FOR ONE MONTH
     Route: 048
     Dates: end: 2014
  9. VITAMIN D [Concomitant]
     Active Substance: VITAMIN D NOS
     Dates: start: 2010
  10. CRESTOR [Suspect]
     Active Substance: ROSUVASTATIN CALCIUM
     Indication: CARDIAC DISORDER
     Route: 048
     Dates: start: 2008, end: 201905
  11. CRESTOR [Suspect]
     Active Substance: ROSUVASTATIN CALCIUM
     Indication: CARDIAC DISORDER
     Dosage: STOPPED FOR A WEEK
     Route: 048
     Dates: end: 2013
  12. DEXILANT [Concomitant]
     Active Substance: DEXLANSOPRAZOLE
     Indication: GASTROOESOPHAGEAL REFLUX DISEASE
     Dosage: AS REQUIRED
     Dates: start: 2008

REACTIONS (20)
  - Spinal disorder [Not Recovered/Not Resolved]
  - Gait inability [Recovered/Resolved]
  - Hypoaesthesia [Recovered/Resolved]
  - Scoliosis [Unknown]
  - Breast cancer female [Recovered/Resolved]
  - Coronary artery occlusion [Recovered/Resolved]
  - Hypophagia [Unknown]
  - Cellulitis [Unknown]
  - Sleep deficit [Unknown]
  - Ill-defined disorder [Unknown]
  - Spinal pain [Unknown]
  - Muscle spasms [Unknown]
  - Migraine [Recovered/Resolved]
  - Dyspepsia [Unknown]
  - Muscle tightness [Unknown]
  - Muscle tightness [Recovered/Resolved]
  - Pain in extremity [Not Recovered/Not Resolved]
  - Troponin increased [Recovered/Resolved]
  - Cough [Unknown]
  - Gastrooesophageal reflux disease [Unknown]

NARRATIVE: CASE EVENT DATE: 2008
